FAERS Safety Report 13688505 (Version 1)
Quarter: 2017Q2

REPORT INFORMATION
  Report Type: Spontaneous
  Country: US (occurrence: US)
  Receive Date: 20170623
  Receipt Date: 20170623
  Transmission Date: 20170830
  Serious: No
  Sender: FDA-Public Use
  Company Number: None

PATIENT
  Age: 56 Year
  Sex: Female
  Weight: 61 kg

DRUGS (1)
  1. REMICADE [Suspect]
     Active Substance: INFLIXIMAB
     Indication: RHEUMATOID ARTHRITIS
     Dosage: IV EVERY 28 DAYS?
     Route: 042
     Dates: start: 20170424, end: 20170601

REACTIONS (2)
  - Blood glucose increased [None]
  - Liver function test increased [None]

NARRATIVE: CASE EVENT DATE: 20170606
